FAERS Safety Report 7199290-4 (Version None)
Quarter: 2010Q4

REPORT INFORMATION
  Report Type: 
  Country: None (occurrence: None)
  Receive Date: 20101228
  Receipt Date: 20101216
  Transmission Date: 20110411
  Serious: Yes (Hospitalization)
  Sender: FDA-Public Use
  Company Number: JP-JNJFOC-20101208041

PATIENT
  Sex: Female

DRUGS (12)
  1. FLORID [Suspect]
     Indication: ORAL CANDIDIASIS
     Route: 048
  2. FLORID [Suspect]
     Route: 048
  3. FLORID [Suspect]
     Route: 048
  4. FLORID [Suspect]
     Route: 048
  5. WARFARIN POTASSIUM [Interacting]
     Indication: PRODUCT USED FOR UNKNOWN INDICATION
     Route: 048
  6. DIENOGEST [Suspect]
     Indication: PRODUCT USED FOR UNKNOWN INDICATION
     Route: 065
  7. DIENOGEST [Suspect]
     Dosage: 10 G/DAY FOR 7 DAYS
     Route: 065
  8. DIENOGEST [Suspect]
     Dosage: 10 G/DAY FOR 7 DAYS
     Route: 065
  9. DIENOGEST [Suspect]
     Dosage: 10 G/DAY FOR 7 DAYS
     Route: 065
  10. DIENOGEST [Suspect]
     Route: 065
  11. RIBOFLAVIN TAB [Concomitant]
     Route: 048
  12. TRANSAMIN [Concomitant]
     Route: 065

REACTIONS (3)
  - DRUG INTERACTION [None]
  - INTRA-ABDOMINAL HAEMORRHAGE [None]
  - PULMONARY HAEMORRHAGE [None]
